FAERS Safety Report 16371790 (Version 5)
Quarter: 2019Q3

REPORT INFORMATION
  Report Type: Spontaneous
  Country: US (occurrence: US)
  Receive Date: 20190530
  Receipt Date: 20190823
  Transmission Date: 20191004
  Serious: Yes (Disabling)
  Sender: FDA-Public Use
  Company Number: US-PFIZER INC-2019225414

PATIENT
  Age: 75 Year
  Sex: Male
  Weight: 45.36 kg

DRUGS (5)
  1. DEPO-MEDROL [Suspect]
     Active Substance: METHYLPREDNISOLONE ACETATE
     Indication: SPINAL OSTEOARTHRITIS
     Dosage: 20 MG, SINGLE (0.5 ML)
     Dates: start: 20190411, end: 20190411
  2. MARCAINE [Suspect]
     Active Substance: BUPIVACAINE HYDROCHLORIDE
     Indication: ARTHRITIS
     Dosage: 0.55 ML, UNK (0.55CC INJECTION)
     Dates: start: 20190411, end: 20190411
  3. MARCAINE [Suspect]
     Active Substance: BUPIVACAINE HYDROCHLORIDE
     Indication: NECK PAIN
     Dosage: 0.5 ML, UNK
     Dates: start: 20190411
  4. DEPO-MEDROL [Suspect]
     Active Substance: METHYLPREDNISOLONE ACETATE
     Indication: NECK PAIN
     Dosage: 10 MG, 1X/DAY
     Dates: start: 20190411, end: 20190411
  5. DEPO-MEDROL [Suspect]
     Active Substance: METHYLPREDNISOLONE ACETATE
     Indication: ARTHRITIS

REACTIONS (7)
  - Condition aggravated [Not Recovered/Not Resolved]
  - Reaction to preservatives [Not Recovered/Not Resolved]
  - Rash [Not Recovered/Not Resolved]
  - Insomnia [Not Recovered/Not Resolved]
  - Pruritus [Not Recovered/Not Resolved]
  - Urticaria [Not Recovered/Not Resolved]
  - Drug hypersensitivity [Not Recovered/Not Resolved]

NARRATIVE: CASE EVENT DATE: 201904
